FAERS Safety Report 20233205 (Version 1)
Quarter: 2021Q4

REPORT INFORMATION
  Report Type: Spontaneous
  Country: US (occurrence: None)
  Receive Date: 20211226
  Receipt Date: 20211226
  Transmission Date: 20220303
  Serious: No
  Sender: FDA-Public Use
  Company Number: None

PATIENT
  Age: 55 Year
  Sex: Female
  Weight: 53.1 kg

DRUGS (22)
  1. QULIPTA [Suspect]
     Active Substance: ATOGEPANT
     Indication: Migraine
     Dosage: OTHER QUANTITY : 1 TABLET(S);?
     Route: 048
     Dates: start: 20211022
  2. SYNTHROID [Concomitant]
     Active Substance: LEVOTHYROXINE SODIUM
  3. QULIPTA [Concomitant]
     Active Substance: ATOGEPANT
  4. IMITREX [Concomitant]
     Active Substance: SUMATRIPTAN SUCCINATE
  5. c [Concomitant]
  6. FISH OIL [Concomitant]
     Active Substance: FISH OIL
  7. VITAMIN B12 [Concomitant]
     Active Substance: CYANOCOBALAMIN
  8. D [Concomitant]
  9. ZINC [Concomitant]
     Active Substance: ZINC
  10. ALGINIC ACID [Concomitant]
     Active Substance: ALGINIC ACID
  11. BORON [Concomitant]
     Active Substance: BORON
  12. CALCIUM [Concomitant]
     Active Substance: CALCIUM
  13. ASPIRIN [Concomitant]
     Active Substance: ASPIRIN
  14. MK-7 [Concomitant]
  15. VITAMIN B COMPLEX [Concomitant]
     Active Substance: CYANOCOBALAMIN\DEXPANTHENOL\NIACINAMIDE\PYRIDOXINE HYDROCHLORIDE\RIBOFLAVIN 5^-PHOSPHATE SODIUM\THIA
  16. PANTOTHENIC ACID [Concomitant]
     Active Substance: PANTOTHENIC ACID
  17. Pine bark [Concomitant]
  18. BIOTIN [Concomitant]
     Active Substance: BIOTIN
  19. SILICON DIOXIDE [Concomitant]
     Active Substance: SILICON DIOXIDE
  20. DIMETHYL SULFONE [Concomitant]
     Active Substance: DIMETHYL SULFONE
  21. MAGNESIUM CITRATE [Concomitant]
     Active Substance: MAGNESIUM CITRATE
  22. STRONTIUM [Concomitant]
     Active Substance: STRONTIUM

REACTIONS (4)
  - Eye pain [None]
  - Ocular hyperaemia [None]
  - Eye irritation [None]
  - Uveitis [None]

NARRATIVE: CASE EVENT DATE: 20211115
